FAERS Safety Report 18053562 (Version 1)
Quarter: 2020Q3

REPORT INFORMATION
  Report Type: Spontaneous
  Country: US (occurrence: US)
  Receive Date: 20200721
  Receipt Date: 20200721
  Transmission Date: 20201103
  Serious: No
  Sender: FDA-Public Use
  Company Number: None

PATIENT
  Age: 84 Year
  Sex: Female
  Weight: 97.52 kg

DRUGS (2)
  1. FORTEO [Suspect]
     Active Substance: TERIPARATIDE
     Indication: OSTEOPOROTIC FRACTURE
     Route: 058
     Dates: start: 201907
  2. FORTEO [Suspect]
     Active Substance: TERIPARATIDE
     Indication: POLYMYOSITIS
     Route: 058
     Dates: start: 201907

REACTIONS (2)
  - Cystitis [None]
  - Swelling face [None]
